FAERS Safety Report 21476246 (Version 1)
Quarter: 2022Q4

REPORT INFORMATION
  Report Type: Spontaneous
  Country: US (occurrence: US)
  Receive Date: 20221019
  Receipt Date: 20221019
  Transmission Date: 20230112
  Serious: No
  Sender: FDA-Public Use
  Company Number: US-TEVA-2022-US-2081126

PATIENT
  Sex: Female

DRUGS (1)
  1. ADAPALENE [Suspect]
     Active Substance: ADAPALENE
     Indication: Acne
     Dosage: 0.3 %
     Route: 065
     Dates: start: 20220710, end: 20220824

REACTIONS (9)
  - Facial pain [Unknown]
  - Pruritus [Unknown]
  - Dry skin [Unknown]
  - Erythema [Unknown]
  - Patient dissatisfaction with treatment [Unknown]
  - Rash [Unknown]
  - Acne [Unknown]
  - Emotional distress [Unknown]
  - Drug ineffective [Unknown]

NARRATIVE: CASE EVENT DATE: 20220701
